FAERS Safety Report 6610412-3 (Version None)
Quarter: 2010Q1

REPORT INFORMATION
  Report Type: 
  Country: None (occurrence: None)
  Receive Date: 20100302
  Receipt Date: 20100224
  Transmission Date: 20100710
  Serious: Yes (Death)
  Sender: FDA-Public Use
  Company Number: DK-JNJFOC-20091004343

PATIENT
  Sex: Female
  Weight: 85.3 kg

DRUGS (17)
  1. RISPERIDONE [Suspect]
     Indication: PSYCHOTIC DISORDER
     Dosage: 5+0+5+0 MG
     Route: 048
     Dates: start: 20090216
  2. ERYTHROMYCIN [Suspect]
     Indication: DRUG USE FOR UNKNOWN INDICATION
     Route: 065
     Dates: start: 20090507
  3. LYSANTIN [Suspect]
     Indication: ADVERSE DRUG REACTION
     Route: 048
     Dates: start: 20080206
  4. RIVOTRIL [Suspect]
     Indication: SEDATIVE THERAPY
     Dosage: 1+1+2+0 MG
     Route: 048
  5. CISORDINOL [Suspect]
     Indication: MENTAL DISORDER
     Route: 048
     Dates: start: 20090206
  6. IMIPRAMINE [Suspect]
     Indication: SALIVARY HYPERSECRETION
     Route: 048
     Dates: start: 20080206
  7. LEPONEX [Suspect]
     Indication: MENTAL DISORDER
     Dosage: 200+300+300+0 MG
     Route: 048
  8. TRUXAL [Suspect]
     Indication: MENTAL DISORDER
     Route: 048
     Dates: start: 20090318
  9. NOZINAN [Suspect]
     Indication: DRUG USE FOR UNKNOWN INDICATION
     Route: 065
  10. ALOPAM [Suspect]
     Indication: DRUG USE FOR UNKNOWN INDICATION
     Route: 065
  11. TEGRETOL [Suspect]
     Indication: DRUG USE FOR UNKNOWN INDICATION
     Route: 065
  12. TRILAFON [Suspect]
     Indication: DRUG USE FOR UNKNOWN INDICATION
     Route: 065
  13. PROZIL [Suspect]
     Indication: DRUG USE FOR UNKNOWN INDICATION
     Route: 065
  14. PARACETAMOL [Concomitant]
     Indication: PAIN
     Dosage: MAX 3 TIMES DAILY
     Route: 048
     Dates: start: 19960919
  15. LACTULOSE [Concomitant]
     Indication: LAXATIVE SUPPORTIVE CARE
     Dosage: 667 MG/ML 15 ML X 1
     Route: 065
     Dates: start: 20041111
  16. SODIUM PICOSULFATE [Concomitant]
     Indication: LAXATIVE SUPPORTIVE CARE
     Route: 048
     Dates: start: 20070821
  17. ACTILAX [Concomitant]
     Indication: LAXATIVE SUPPORTIVE CARE
     Dosage: 7.5 MG/ML DROPS
     Route: 065

REACTIONS (2)
  - SINUS TACHYCARDIA [None]
  - SUDDEN DEATH [None]
